FAERS Safety Report 5919561-6 (Version None)
Quarter: 2008Q4

REPORT INFORMATION
  Report Type: 
  Country: None (occurrence: None)
  Receive Date: 20081015
  Receipt Date: 20071115
  Transmission Date: 20090506
  Serious: No
  Sender: FDA-Public Use
  Company Number: US-BRISTOL-MYERS SQUIBB COMPANY-13984299

PATIENT
  Sex: Male

DRUGS (1)
  1. KENALOG-40 [Suspect]
     Dates: start: 20071001

REACTIONS (1)
  - ERECTILE DYSFUNCTION [None]
